FAERS Safety Report 10694994 (Version 1)
Quarter: 2015Q1

REPORT INFORMATION
  Report Type: Spontaneous
  Country: US (occurrence: None)
  Receive Date: 20150105
  Receipt Date: 20150105
  Transmission Date: 20150721
  Serious: Yes (Other)
  Sender: FDA-Public Use
  Company Number: None

PATIENT
  Age: 22 Year
  Sex: Male
  Weight: 93.44 kg

DRUGS (1)
  1. PROMETHAZINE [Suspect]
     Active Substance: PROMETHAZINE\PROMETHAZINE HYDROCHLORIDE
     Indication: NAUSEA
     Dosage: 1 TABLET  4 TIMES DAILY AS NEEDED BY MOUTH
     Route: 048
     Dates: start: 20141219, end: 20141224

REACTIONS (3)
  - Neck pain [None]
  - Seizure [None]
  - Tongue biting [None]

NARRATIVE: CASE EVENT DATE: 20141224
